FAERS Safety Report 11247184 (Version 1)
Quarter: 2015Q3

REPORT INFORMATION
  Report Type: Spontaneous
  Country: US (occurrence: None)
  Receive Date: 20150706
  Receipt Date: 20150706
  Transmission Date: 20151125
  Serious: No
  Sender: FDA-Public Use
  Company Number: None

PATIENT

DRUGS (1)
  1. THORAZINE [Suspect]
     Active Substance: CHLORPROMAZINE
     Route: 048

REACTIONS (10)
  - Drug withdrawal syndrome [None]
  - Decreased appetite [None]
  - Vomiting [None]
  - Muscle spasms [None]
  - Discomfort [None]
  - Headache [None]
  - Drug dispensing error [None]
  - Hypersomnia [None]
  - Feeding disorder [None]
  - Incorrect dose administered [None]

NARRATIVE: CASE EVENT DATE: 2015
